FAERS Safety Report 6826293-9 (Version None)
Quarter: 2010Q3

REPORT INFORMATION
  Report Type: 
  Country: None (occurrence: None)
  Receive Date: 20100709
  Receipt Date: 20100629
  Transmission Date: 20110219
  Serious: Yes (Life-Threatening, Hospitalization, Other)
  Sender: FDA-Public Use
  Company Number: JP-PFIZER INC-2010066342

PATIENT
  Age: 44 Year
  Sex: Female
  Weight: 56 kg

DRUGS (2)
  1. SOLU-MEDROL [Suspect]
     Indication: FOOD ALLERGY
     Dosage: UNK
     Route: 042
  2. SOLU-MEDROL [Suspect]
     Dosage: UNK
     Route: 023

REACTIONS (6)
  - ANAPHYLACTIC SHOCK [None]
  - BLOOD PRESSURE DECREASED [None]
  - GENERALISED ERYTHEMA [None]
  - HYPERSENSITIVITY [None]
  - PRURITUS [None]
  - URTICARIA [None]
